FAERS Safety Report 7455601-3 (Version None)
Quarter: 2011Q2

REPORT INFORMATION
  Report Type: 
  Country: None (occurrence: None)
  Receive Date: 20110503
  Receipt Date: 20110420
  Transmission Date: 20111010
  Serious: Yes (Death)
  Sender: FDA-Public Use
  Company Number: DE-ROCHE-773859

PATIENT
  Sex: Female
  Weight: 64 kg

DRUGS (2)
  1. BEVACIZUMAB [Suspect]
     Route: 065
     Dates: start: 20100725, end: 20101220
  2. XELODA [Concomitant]
     Dates: start: 20091105, end: 20101220

REACTIONS (1)
  - NO THERAPEUTIC RESPONSE [None]
